FAERS Safety Report 25342069 (Version 1)
Quarter: 2025Q2

REPORT INFORMATION
  Report Type: Spontaneous
  Country: GR (occurrence: GR)
  Receive Date: 20250521
  Receipt Date: 20250521
  Transmission Date: 20250717
  Serious: Yes (Hospitalization)
  Sender: NORDIC PHARMA
  Company Number: GR-PFIZER INC-202500093341

PATIENT
  Age: 56 Year
  Sex: Female
  Weight: 120 kg

DRUGS (7)
  1. METHOTREXATE SODIUM [Suspect]
     Active Substance: METHOTREXATE SODIUM
     Indication: Erythrodermic psoriasis
  2. CYCLOSPORINE [Concomitant]
     Active Substance: CYCLOSPORINE
     Indication: Erythrodermic psoriasis
  3. SECUKINUMAB [Concomitant]
     Active Substance: SECUKINUMAB
     Indication: Erythrodermic psoriasis
  4. INFLIXIMAB [Concomitant]
     Active Substance: INFLIXIMAB
     Indication: Erythrodermic psoriasis
  5. ACITRETIN [Concomitant]
     Active Substance: ACITRETIN
     Indication: Erythrodermic psoriasis
  6. ADALIMUMAB [Concomitant]
     Active Substance: ADALIMUMAB
     Indication: Erythrodermic psoriasis
  7. BRODALUMAB [Concomitant]
     Active Substance: BRODALUMAB
     Indication: Erythrodermic psoriasis

REACTIONS (3)
  - Erythrodermic psoriasis [Unknown]
  - Condition aggravated [Unknown]
  - Product use in unapproved indication [Unknown]
